FAERS Safety Report 7687742-X (Version None)
Quarter: 2011Q3

REPORT INFORMATION
  Report Type: 
  Country: None (occurrence: None)
  Receive Date: 20110817
  Receipt Date: 20110805
  Transmission Date: 20111222
  Serious: No
  Sender: FDA-Public Use
  Company Number: US-JNJFOC-20110804341

PATIENT
  Sex: Male
  Weight: 81.19 kg

DRUGS (4)
  1. DURAGESIC-100 [Suspect]
     Indication: MYALGIA
     Route: 062
     Dates: start: 20110528
  2. SEROQUEL [Concomitant]
     Indication: BIPOLAR DISORDER
     Route: 048
     Dates: start: 20110301
  3. METHADONE HYDROCHLORIDE [Concomitant]
     Indication: BREAKTHROUGH PAIN
     Route: 048
     Dates: start: 20110528
  4. KLONOPIN [Concomitant]
     Indication: ANXIETY
     Route: 048
     Dates: start: 20040101

REACTIONS (1)
  - WRONG TECHNIQUE IN DRUG USAGE PROCESS [None]
